FAERS Safety Report 19382687 (Version 1)
Quarter: 2021Q2

REPORT INFORMATION
  Report Type: Spontaneous
  Country: NO (occurrence: NO)
  Receive Date: 20210607
  Receipt Date: 20210607
  Transmission Date: 20210717
  Serious: No
  Sender: FDA-Public Use
  Company Number: NO-TAKEDA-2021TUS033856

PATIENT
  Age: 61 Year
  Sex: Female

DRUGS (3)
  1. NATPARA (PARATHYROID HORMONE) [Suspect]
     Active Substance: PARATHYROID HORMONE
     Indication: HYPOPARATHYROIDISM
     Dosage: 0.25 MICROGRAM, QD
     Route: 058
     Dates: start: 201801
  2. NATPARA (PARATHYROID HORMONE) [Suspect]
     Active Substance: PARATHYROID HORMONE
     Indication: HYPOPARATHYROIDISM
     Dosage: 0.25 MICROGRAM, QD
     Route: 058
     Dates: start: 201801
  3. NATPARA (PARATHYROID HORMONE) [Suspect]
     Active Substance: PARATHYROID HORMONE
     Indication: HYPOPARATHYROIDISM
     Dosage: 0.25 MICROGRAM, QD
     Route: 058
     Dates: start: 201801

REACTIONS (4)
  - Device malfunction [Unknown]
  - Feeling hot [Unknown]
  - Suspected product quality issue [Unknown]
  - Hypocalcaemia [Unknown]

NARRATIVE: CASE EVENT DATE: 201801
